FAERS Safety Report 9958364 (Version 2)
Quarter: 2014Q2

REPORT INFORMATION
  Report Type: Spontaneous
  Country: JP (occurrence: JP)
  Receive Date: 20140305
  Receipt Date: 20140527
  Transmission Date: 20141212
  Serious: Yes (Hospitalization)
  Sender: FDA-Public Use
  Company Number: JP-ASTRAZENECA-2014SE13968

PATIENT
  Age: 68 Year
  Sex: Male

DRUGS (4)
  1. NEXIUM [Suspect]
     Indication: ABDOMINAL DISCOMFORT
     Route: 048
  2. ANTIDIABETIC AGENTS [Interacting]
     Indication: DIABETES MELLITUS
     Route: 065
  3. ALLOPURINOL [Concomitant]
     Dosage: DOSE UNKNOWN
     Route: 065
  4. PARIET [Concomitant]
     Indication: ABDOMINAL DISCOMFORT
     Dosage: DOSE UNKNOWN
     Route: 065

REACTIONS (4)
  - Drug interaction [Unknown]
  - Chromaturia [Unknown]
  - Urine abnormality [Unknown]
  - Hepatic function abnormal [Unknown]
